FAERS Safety Report 5730541-6 (Version None)
Quarter: 2008Q2

REPORT INFORMATION
  Report Type: 
  Country: None (occurrence: None)
  Receive Date: 20080507
  Receipt Date: 20080429
  Transmission Date: 20081010
  Serious: Yes (Other)
  Sender: FDA-Public Use
  Company Number: US-MERCK-0804USA04515

PATIENT
  Age: 70 Year
  Sex: Female

DRUGS (11)
  1. VYTORIN [Suspect]
     Indication: BLOOD CHOLESTEROL INCREASED
     Route: 048
     Dates: start: 20030201
  2. ADVAIR HFA [Concomitant]
     Route: 065
  3. XANAX [Concomitant]
     Route: 065
  4. FOSAMAX PLUS D [Concomitant]
     Route: 048
  5. PRILOSEC [Concomitant]
     Route: 048
  6. TYLENOL [Concomitant]
     Route: 065
  7. IBUPROFEN [Concomitant]
     Route: 065
  8. SPIRIVA [Concomitant]
  9. [THERAPY UNSPECIFIED] [Concomitant]
     Route: 065
  10. CALTRATE [Concomitant]
     Route: 065
  11. FORADIL [Concomitant]
     Route: 065

REACTIONS (4)
  - DYSPHONIA [None]
  - GASTROOESOPHAGEAL REFLUX DISEASE [None]
  - HEMIPARESIS [None]
  - UPPER RESPIRATORY TRACT INFECTION [None]
